FAERS Safety Report 9143568 (Version 2)
Quarter: 2013Q2

REPORT INFORMATION
  Report Type: Spontaneous
  Country: US (occurrence: US)
  Receive Date: 20130306
  Receipt Date: 20130424
  Transmission Date: 20140414
  Serious: Yes (Other)
  Sender: FDA-Public Use
  Company Number: US-AMGEN-USASP2013013033

PATIENT
  Age: 90 Year
  Sex: Female
  Weight: 47.62 kg

DRUGS (9)
  1. PROLIA [Suspect]
     Indication: OSTEOPOROSIS POSTMENOPAUSAL
     Dosage: 60 MG, Q6MO
     Route: 058
     Dates: start: 20110929, end: 20121011
  2. ENALAPRIL [Concomitant]
  3. ATENOLOL [Concomitant]
  4. KLONOPIN [Concomitant]
  5. PERCOCET                           /00446701/ [Concomitant]
  6. ASPIRIN [Concomitant]
  7. VITAMIN B-12 [Concomitant]
  8. CALCIUM [Concomitant]
     Route: 048
  9. VITAMIN D                          /00107901/ [Concomitant]
     Route: 048

REACTIONS (2)
  - Osteonecrosis of jaw [Recovered/Resolved]
  - Tooth disorder [Unknown]
